FAERS Safety Report 24147223 (Version 1)
Quarter: 2024Q3

REPORT INFORMATION
  Report Type: Spontaneous
  Country: US (occurrence: US)
  Receive Date: 20240729
  Receipt Date: 20240729
  Transmission Date: 20241016
  Serious: No
  Sender: ELI LILLY AND CO
  Company Number: US-ELI_LILLY_AND_COMPANY-US202407015708

PATIENT
  Age: 53 Year
  Sex: Female

DRUGS (1)
  1. ZEPBOUND [Suspect]
     Active Substance: TIRZEPATIDE
     Indication: Gastrointestinal disorder
     Dosage: UNK UNK, UNKNOWN
     Route: 065

REACTIONS (6)
  - Gastritis [Unknown]
  - Oesophageal disorder [Unknown]
  - Irritable bowel syndrome [Unknown]
  - Feeling abnormal [Unknown]
  - Off label use [Unknown]
  - Injection site bruising [Unknown]
